FAERS Safety Report 23911734 (Version 1)
Quarter: 2024Q2

REPORT INFORMATION
  Report Type: Spontaneous
  Country: US (occurrence: US)
  Receive Date: 20240528
  Receipt Date: 20240528
  Transmission Date: 20240716
  Serious: No
  Sender: FDA-Public Use
  Company Number: US-SA-SAC20240527000353

PATIENT
  Age: 76 Year
  Sex: Male
  Weight: 68.03 kg

DRUGS (1)
  1. REZUROCK [Suspect]
     Active Substance: BELUMOSUDIL
     Indication: Acute myeloid leukaemia
     Dosage: 200 MG, QD
     Route: 048

REACTIONS (2)
  - Tooth disorder [Recovering/Resolving]
  - Product use in unapproved indication [Unknown]
